FAERS Safety Report 26097301 (Version 1)
Quarter: 2025Q4

REPORT INFORMATION
  Report Type: Spontaneous
  Country: US (occurrence: US)
  Receive Date: 20251127
  Receipt Date: 20251127
  Transmission Date: 20260117
  Serious: Yes (Other)
  Sender: SANOFI AVENTIS
  Company Number: US-SA-2025SA351225

PATIENT
  Age: 60 Year
  Sex: Male

DRUGS (4)
  1. DUPIXENT [Suspect]
     Active Substance: DUPILUMAB
     Dosage: 600 MG, 1X
     Route: 058
  2. OXYGEN [Concomitant]
     Active Substance: OXYGEN
     Indication: Pulmonary congestion
  3. OXYGEN [Concomitant]
     Active Substance: OXYGEN
     Indication: Chest discomfort
  4. OXYGEN [Concomitant]
     Active Substance: OXYGEN
     Indication: Productive cough

REACTIONS (3)
  - Pulmonary congestion [Unknown]
  - Chest discomfort [Unknown]
  - Productive cough [Unknown]
